FAERS Safety Report 9934013 (Version 1)
Quarter: 2014Q1

REPORT INFORMATION
  Report Type: Spontaneous
  Country: US (occurrence: US)
  Receive Date: 20140228
  Receipt Date: 20140228
  Transmission Date: 20141002
  Serious: No
  Sender: FDA-Public Use
  Company Number: US-ABBVIE-13P-163-1184566-00

PATIENT
  Age: 75 Year
  Sex: Male
  Weight: 72.64 kg

DRUGS (3)
  1. ANDROGEL [Suspect]
     Indication: BLOOD TESTOSTERONE DECREASED
     Dosage: ONE PUMP DAILY
     Route: 061
     Dates: start: 2011, end: 201311
  2. ANDROGEL [Suspect]
     Dosage: TWO PUMPS DAILY
     Route: 061
     Dates: start: 201311, end: 20131217
  3. ANDROGEL [Suspect]
     Dosage: FOUR PUMPS DAILY
     Route: 061
     Dates: start: 20131217

REACTIONS (2)
  - Wrong technique in drug usage process [Not Recovered/Not Resolved]
  - Blood testosterone decreased [Not Recovered/Not Resolved]
